FAERS Safety Report 14552793 (Version 1)
Quarter: 2018Q1

REPORT INFORMATION
  Report Type: Spontaneous
  Country: US (occurrence: US)
  Receive Date: 20180216
  Receipt Date: 20180216
  Transmission Date: 20180509
  Serious: Yes (Hospitalization)
  Sender: FDA-Public Use
  Company Number: None

PATIENT
  Age: 61 Year
  Sex: Female

DRUGS (1)
  1. ORENCIA [Suspect]
     Active Substance: ABATACEPT

REACTIONS (3)
  - Therapy cessation [None]
  - Myocardial infarction [None]
  - Nasopharyngitis [None]

NARRATIVE: CASE EVENT DATE: 20171229
